FAERS Safety Report 20001227 (Version 1)
Quarter: 2021Q4

REPORT INFORMATION
  Report Type: Report from Study
  Country: AR (occurrence: AR)
  Receive Date: 20211027
  Receipt Date: 20211027
  Transmission Date: 20220303
  Serious: Yes (Other)
  Sender: FDA-Public Use
  Company Number: AR-TEVA-2021-AR-1970262

PATIENT
  Age: 59 Year
  Sex: Female

DRUGS (1)
  1. COPAXONE [Suspect]
     Active Substance: GLATIRAMER ACETATE
     Indication: Relapsing-remitting multiple sclerosis
     Route: 058
     Dates: start: 20170607

REACTIONS (5)
  - Abdominal abscess [Recovered/Resolved]
  - Erythema [Recovered/Resolved]
  - Hyperaesthesia [Recovered/Resolved]
  - Scar [Recovered/Resolved]
  - Lack of application site rotation [Unknown]

NARRATIVE: CASE EVENT DATE: 20200601
